FAERS Safety Report 4724291-2 (Version None)
Quarter: 2005Q3

REPORT INFORMATION
  Report Type: 
  Country: None (occurrence: None)
  Receive Date: 20050722
  Receipt Date: 20050712
  Transmission Date: 20060218
  Serious: Yes (Hospitalization, Disabling, Other)
  Sender: FDA-Public Use
  Company Number: EM2005-0340

PATIENT
  Age: 37 Year
  Sex: Male
  Weight: 61.5 kg

DRUGS (7)
  1. PROLEUKIN [Suspect]
     Dosage: 9 MIU/DA, QD, SUBCUTANEOUS
     Route: 058
     Dates: start: 20050428, end: 20050502
  2. PROLEUKIN [Suspect]
     Dosage: 9 MIU/DA, QD, SUBCUTANEOUS
     Route: 058
     Dates: start: 20050526, end: 20050530
  3. ZOVIRAX [Concomitant]
  4. KALETRA (ERYTHROMYCIN ESTOLATE) [Concomitant]
  5. FUZEON [Concomitant]
  6. TRIZIVIR [Concomitant]
  7. VIREAD [Concomitant]

REACTIONS (2)
  - ABDOMINAL PAIN UPPER [None]
  - SPLENOMEGALY [None]
